FAERS Safety Report 4387449-0 (Version None)
Quarter: 2004Q2

REPORT INFORMATION
  Report Type: 
  Country: None (occurrence: None)
  Receive Date: 20040628
  Receipt Date: 20040615
  Transmission Date: 20050107
  Serious: Yes (Hospitalization)
  Sender: FDA-Public Use
  Company Number: 2004UW08247

PATIENT
  Age: 83 Year
  Sex: Female
  Weight: 54 kg

DRUGS (12)
  1. CRESTOR [Suspect]
     Indication: HYPERLIPIDAEMIA
     Dosage: 10 MG PO
     Route: 048
     Dates: start: 20040206, end: 20040418
  2. LEXAPRO [Suspect]
     Indication: DEPRESSION
     Dosage: 10 MG
     Dates: start: 20040413
  3. DIOVAN HCT [Suspect]
  4. CARDIZEM [Concomitant]
  5. XANAX [Concomitant]
  6. PROTONIX [Concomitant]
  7. BIAXIN [Concomitant]
  8. PRINIVIIL [Concomitant]
  9. DEXTRA [Concomitant]
  10. THEOSOL [Concomitant]
  11. NITROGLYCERIN [Concomitant]
  12. NSAID [Concomitant]

REACTIONS (16)
  - ASTHENIA [None]
  - BLOOD POTASSIUM DECREASED [None]
  - BLOOD PRESSURE SYSTOLIC INCREASED [None]
  - BODY TEMPERATURE INCREASED [None]
  - CARDIAC MURMUR [None]
  - DEPRESSION [None]
  - EATING DISORDER [None]
  - FATIGUE [None]
  - HELICOBACTER INFECTION [None]
  - INAPPROPRIATE ANTIDIURETIC HORMONE SECRETION [None]
  - MYOSITIS [None]
  - NAUSEA [None]
  - PCO2 DECREASED [None]
  - PEDAL PULSE DECREASED [None]
  - RESPIRATORY RATE INCREASED [None]
  - VOMITING [None]
